FAERS Safety Report 4444894-2 (Version None)
Quarter: 2004Q3

REPORT INFORMATION
  Report Type: 
  Country: None (occurrence: None)
  Receive Date: 20040909
  Receipt Date: 20040813
  Transmission Date: 20050211
  Serious: Yes (Hospitalization)
  Sender: FDA-Public Use
  Company Number: JP-GLAXOSMITHKLINE-B0342855A

PATIENT
  Age: 46 Year
  Sex: Male
  Weight: 49 kg

DRUGS (9)
  1. PAXIL [Suspect]
     Indication: DEPRESSION
     Dosage: 10MG TWICE PER DAY
     Route: 048
     Dates: start: 20040609, end: 20040612
  2. PENTASA [Concomitant]
     Indication: CROHN'S DISEASE
     Dosage: 2250MG PER DAY
     Route: 048
     Dates: end: 20040606
  3. ELENTAL [Concomitant]
     Indication: CROHN'S DISEASE
     Dosage: 240G PER DAY
     Dates: start: 20040604, end: 20040606
  4. MUCOSTA [Concomitant]
     Indication: CROHN'S DISEASE
     Dosage: 1500MG PER DAY
     Route: 048
     Dates: end: 20040606
  5. MIXID-H [Concomitant]
     Indication: CROHN'S DISEASE
     Dosage: 900ML PER DAY
     Route: 042
     Dates: start: 20040607
  6. BIOFERMIN [Concomitant]
     Indication: CROHN'S DISEASE
     Dosage: 2G PER DAY
     Route: 048
     Dates: end: 20040606
  7. LAC B [Concomitant]
     Indication: CROHN'S DISEASE
     Dosage: 2G PER DAY
     Route: 048
     Dates: end: 20040606
  8. VOLTAREN [Concomitant]
     Indication: PAIN
     Route: 054
     Dates: start: 20040502
  9. AMOBAN [Concomitant]
     Indication: INSOMNIA
     Route: 048

REACTIONS (9)
  - ALANINE AMINOTRANSFERASE INCREASED [None]
  - ASPARTATE AMINOTRANSFERASE INCREASED [None]
  - BLOOD ALKALINE PHOSPHATASE INCREASED [None]
  - BLOOD BILIRUBIN INCREASED [None]
  - DYSPNOEA [None]
  - GAMMA-GLUTAMYLTRANSFERASE INCREASED [None]
  - LIVER DISORDER [None]
  - PYREXIA [None]
  - STAPHYLOCOCCAL INFECTION [None]
